FAERS Safety Report 16207288 (Version 2)
Quarter: 2019Q2

REPORT INFORMATION
  Report Type: Spontaneous
  Country: DE (occurrence: DE)
  Receive Date: 20190417
  Receipt Date: 20190501
  Transmission Date: 20190711
  Serious: Yes (Other)
  Sender: FDA-Public Use
  Company Number: PHHY2019DE085805

PATIENT
  Age: 80 Year
  Sex: Male

DRUGS (5)
  1. TIMO EDO [Suspect]
     Active Substance: TIMOLOL MALEATE
     Indication: PRODUCT USED FOR UNKNOWN INDICATION
     Dosage: 2 GTT, QD (DRIPPED 2 TIMES DAILY IN 10-HOUR INTERVALS (JUL/2018 OR BEGINNING OF AUG/2018)
     Route: 065
     Dates: start: 2018, end: 201901
  2. MARCUMAR [Concomitant]
     Active Substance: PHENPROCOUMON
     Indication: THROMBOSIS
     Dosage: UNK
     Route: 065
  3. PILOCARPINE. [Concomitant]
     Active Substance: PILOCARPINE
     Indication: GLAUCOMA
     Dosage: UNK
     Route: 065
  4. CANDECOR [Concomitant]
     Active Substance: CANDESARTAN CILEXETIL
     Indication: PRODUCT USED FOR UNKNOWN INDICATION
     Route: 065
  5. LATANOPROST. [Suspect]
     Active Substance: LATANOPROST
     Indication: PRODUCT USED FOR UNKNOWN INDICATION
     Dosage: UNK, USED FOR TWO YEARS
     Route: 065

REACTIONS (18)
  - Asthenia [Recovered/Resolved]
  - Tinnitus [Recovered/Resolved]
  - Diplopia [Recovered/Resolved]
  - Pain in extremity [Not Recovered/Not Resolved]
  - Mobility decreased [Unknown]
  - Urinary incontinence [Unknown]
  - Groin pain [Unknown]
  - Musculoskeletal chest pain [Not Recovered/Not Resolved]
  - Fatigue [Recovered/Resolved]
  - Diarrhoea [Recovered/Resolved]
  - Lacrimation increased [Unknown]
  - Myalgia [Unknown]
  - Urethral disorder [Unknown]
  - Arthralgia [Unknown]
  - Peripheral coldness [Recovered/Resolved]
  - Arrhythmia [Recovered/Resolved]
  - Chills [Recovered/Resolved]
  - Muscular weakness [Recovered/Resolved]

NARRATIVE: CASE EVENT DATE: 201809
